FAERS Safety Report 12392575 (Version 2)
Quarter: 2016Q3

REPORT INFORMATION
  Report Type: Spontaneous
  Country: US (occurrence: US)
  Receive Date: 20160523
  Receipt Date: 20160729
  Transmission Date: 20161109
  Serious: Yes (Other)
  Sender: FDA-Public Use
  Company Number: US-TEVA-661669ACC

PATIENT
  Sex: Female
  Weight: 64.47 kg

DRUGS (2)
  1. PARAGARD T 380A [Suspect]
     Active Substance: COPPER
     Indication: CONTRACEPTION
     Dates: start: 20160405, end: 20160512
  2. PARAGARD T 380A [Suspect]
     Active Substance: COPPER
     Dates: start: 20160512

REACTIONS (1)
  - Device dislocation [Recovered/Resolved]
